FAERS Safety Report 8925177 (Version 1)
Quarter: 2012Q4

REPORT INFORMATION
  Report Type: 
  Country: US (occurrence: US)
  Receive Date: 20121126
  Receipt Date: 20121126
  Transmission Date: 20130627
  Serious: No
  Sender: FDA-Public Use
  Company Number: US-VERTEX PHARMACEUTICAL INC.-2012-024941

PATIENT
  Age: 31 Year
  Sex: Male
  Weight: 121 kg

DRUGS (10)
  1. VX-950 (TELAPREVIR) [Suspect]
     Indication: HEPATITIS C
     Dosage: 750 mg, tid
     Route: 048
     Dates: start: 20120604
  2. PEGASYS [Suspect]
     Indication: HEPATITIS C
     Dosage: 180 ?g, qw
     Route: 058
     Dates: start: 20120604
  3. RIBAPAK [Concomitant]
     Indication: HEPATITIS C
     Dosage: 600 mg, bid
     Route: 048
     Dates: start: 20120604
  4. HYDROCODONE BITARTRATE AND IBUPROFEN [Concomitant]
     Dosage: 200 mg, qd
     Route: 048
  5. SPIRONOLACTONE [Concomitant]
     Dosage: 25 mg, qd
     Route: 048
  6. ALLOPURINOL [Concomitant]
     Dosage: 300 mg, qd
     Route: 048
  7. PHENERGAN                          /00033001/ [Concomitant]
     Dosage: 25 mg, qd
     Route: 048
  8. REGLAN                             /00041901/ [Concomitant]
     Dosage: 5 mg, qd
     Route: 048
  9. NEXIUM                             /01479302/ [Concomitant]
     Dosage: 40 mg, qd
     Route: 048
  10. ATENOLOL [Concomitant]
     Dosage: 25 mg, qd
     Route: 048

REACTIONS (2)
  - Vision blurred [Unknown]
  - Headache [Unknown]
